FAERS Safety Report 4834948-0 (Version None)
Quarter: 2005Q4

REPORT INFORMATION
  Report Type: 
  Country: None (occurrence: None)
  Receive Date: 20051115
  Receipt Date: 20051104
  Transmission Date: 20060501
  Serious: Yes (Other)
  Sender: FDA-Public Use
  Company Number: 2005150840

PATIENT
  Sex: Female

DRUGS (1)
  1. BENADRYL [Suspect]
     Indication: INSOMNIA
     Dosage: 12 TABS AT ONCE, ORAL
     Route: 048
     Dates: start: 20051104, end: 20051104

REACTIONS (1)
  - DYSARTHRIA [None]
